FAERS Safety Report 7297999-5 (Version None)
Quarter: 2011Q1

REPORT INFORMATION
  Report Type: 
  Country: None (occurrence: None)
  Receive Date: 20110217
  Receipt Date: 20110214
  Transmission Date: 20110831
  Serious: No
  Sender: FDA-Public Use
  Company Number: US-PFIZER INC-2011033352

PATIENT
  Sex: Female
  Weight: 22.222 kg

DRUGS (1)
  1. IBUPROFEN (ADVIL) [Suspect]
     Indication: PYREXIA
     Dosage: UNK
     Route: 048
     Dates: start: 20110207, end: 20110210

REACTIONS (1)
  - DRUG INEFFECTIVE [None]
